FAERS Safety Report 5075450-3 (Version None)
Quarter: 2006Q3

REPORT INFORMATION
  Report Type: 
  Country: None (occurrence: None)
  Receive Date: 20060809
  Receipt Date: 20060428
  Transmission Date: 20061208
  Serious: Yes (Death)
  Sender: FDA-Public Use
  Company Number: 2006AP02003

PATIENT
  Age: 30381 Day
  Sex: Female
  Weight: 60 kg

DRUGS (11)
  1. ARIMIDEX [Suspect]
     Indication: BREAST CANCER
     Route: 048
     Dates: start: 20060316
  2. CYCLOPHOSPHAMIDE [Suspect]
     Indication: BREAST CANCER
     Dosage: 3 COURSES ADMINSTERED
     Dates: start: 20051121, end: 20060104
  3. EPIRUBICIN [Suspect]
     Indication: BREAST CANCER
     Dosage: 3 COURSES ADMINSTERED
     Dates: start: 20051121, end: 20060104
  4. FLUOROURACIL [Suspect]
     Indication: BREAST CANCER
     Dosage: 3 COURSES ADMINSTERED
     Dates: start: 20051121, end: 20060104
  5. AMARYL [Concomitant]
     Indication: DIABETES MELLITUS
     Route: 048
     Dates: start: 20030101
  6. NIFESLOW [Concomitant]
     Indication: HYPERTENSION
     Route: 048
     Dates: start: 20020101
  7. OMEPRAZOLE [Concomitant]
     Indication: REFLUX OESOPHAGITIS
     Route: 048
  8. CINBENON [Concomitant]
     Indication: HYPERTENSION
     Route: 048
     Dates: start: 20020101
  9. RADIOTHERAPY [Concomitant]
     Dates: start: 20050101
  10. RADIOTHERAPY [Concomitant]
     Dosage: TO RIGHT BREAST
     Dates: start: 20060327, end: 20060327
  11. TAXOTERE [Concomitant]
     Indication: BREAST CANCER
     Route: 041
     Dates: start: 20051121, end: 20060104

REACTIONS (3)
  - CARDIAC FAILURE [None]
  - CARDIAC FAILURE ACUTE [None]
  - CARDIO-RESPIRATORY ARREST [None]
